FAERS Safety Report 7350787-3 (Version None)
Quarter: 2011Q1

REPORT INFORMATION
  Report Type: 
  Country: None (occurrence: None)
  Receive Date: 20110314
  Receipt Date: 20110303
  Transmission Date: 20110831
  Serious: Yes (Life-Threatening)
  Sender: FDA-Public Use
  Company Number: GB-BAXTER-2011BH005321

PATIENT
  Age: 72 Year
  Sex: Female

DRUGS (8)
  1. DEXAMETHASONE [Suspect]
     Indication: INFLAMMATION
     Route: 042
     Dates: start: 20110217, end: 20110217
  2. CISPLATIN [Suspect]
     Route: 042
     Dates: start: 20110217, end: 20110217
  3. CISPLATIN [Suspect]
     Indication: CHEMOTHERAPY
     Route: 042
  4. OSMITROL INJECTION [Suspect]
     Indication: POLYURIA
     Route: 042
  5. ONDANSETRON, UNSPECIFIED [Suspect]
     Indication: PROPHYLAXIS OF NAUSEA AND VOMITING
     Route: 042
     Dates: start: 20110217, end: 20110217
  6. TAXOTERE [Suspect]
     Indication: PRODUCT USED FOR UNKNOWN INDICATION
     Route: 065
  7. GEMCITABINE [Suspect]
     Indication: CHEMOTHERAPY
     Route: 042
     Dates: start: 20110217, end: 20110217
  8. OSMITROL INJECTION [Suspect]
     Route: 042
     Dates: start: 20110217, end: 20110217

REACTIONS (2)
  - CHEST DISCOMFORT [None]
  - DYSPNOEA [None]
